FAERS Safety Report 5790202-4 (Version None)
Quarter: 2008Q2

REPORT INFORMATION
  Report Type: 
  Country: None (occurrence: None)
  Receive Date: 20080626
  Receipt Date: 20080311
  Transmission Date: 20081010
  Serious: No
  Sender: FDA-Public Use
  Company Number: A0705073A

PATIENT

DRUGS (1)
  1. ALLI [Suspect]
     Indication: DRUG USE FOR UNKNOWN INDICATION

REACTIONS (19)
  - ANOREXIA [None]
  - APATHY [None]
  - BACK DISORDER [None]
  - COUGH [None]
  - CRYING [None]
  - DRUG INEFFECTIVE [None]
  - DYSPNOEA [None]
  - FOOD CRAVING [None]
  - HUNGER [None]
  - ILL-DEFINED DISORDER [None]
  - INFLUENZA [None]
  - MALAISE [None]
  - NASOPHARYNGITIS [None]
  - PHARYNGITIS STREPTOCOCCAL [None]
  - PHARYNGOLARYNGEAL PAIN [None]
  - RHINORRHOEA [None]
  - SOMNOLENCE [None]
  - THROAT IRRITATION [None]
  - WEIGHT INCREASED [None]
